FAERS Safety Report 9760086 (Version 1)
Quarter: 2013Q4

REPORT INFORMATION
  Report Type: Spontaneous
  Country: US (occurrence: US)
  Receive Date: 20131216
  Receipt Date: 20131216
  Transmission Date: 20140711
  Serious: No
  Sender: FDA-Public Use
  Company Number: US-BIOGENIDEC-2013BI101079

PATIENT
  Sex: Female

DRUGS (7)
  1. TECFIDERA [Suspect]
     Indication: PRODUCT USED FOR UNKNOWN INDICATION
     Route: 048
  2. LAMICTAL [Concomitant]
  3. TEGRETOL [Concomitant]
  4. ZOLPIDEM [Concomitant]
  5. VITAMIN C [Concomitant]
  6. ALEVE [Concomitant]
  7. ADVIL PM [Concomitant]

REACTIONS (1)
  - Flushing [Unknown]
